FAERS Safety Report 8854030 (Version 1)
Quarter: 2012Q4

REPORT INFORMATION
  Report Type: Spontaneous
  Country: US (occurrence: None)
  Receive Date: 20121019
  Receipt Date: 20121019
  Transmission Date: 20130627
  Serious: Yes (Other)
  Sender: FDA-Public Use
  Company Number: None

PATIENT
  Sex: Female
  Weight: 108.86 kg

DRUGS (1)
  1. SERTRALINE HYDROCHLORIDE [Suspect]
     Indication: DEPRESSION
     Dosage: 25mg-150mg  once a day by mouth
     Route: 048

REACTIONS (16)
  - Insomnia [None]
  - Overdose [None]
  - Mania [None]
  - Depression [None]
  - Panic attack [None]
  - Palpitations [None]
  - Blood pressure immeasurable [None]
  - Euphoric mood [None]
  - Fear [None]
  - Paranoia [None]
  - Amnesia [None]
  - Hyperhidrosis [None]
  - Confusional state [None]
  - Tremor [None]
  - Malaise [None]
  - Drug hypersensitivity [None]
